FAERS Safety Report 25148575 (Version 1)
Quarter: 2025Q2

REPORT INFORMATION
  Report Type: Spontaneous
  Country: US (occurrence: US)
  Receive Date: 20250402
  Receipt Date: 20250402
  Transmission Date: 20250716
  Serious: Yes (Other)
  Sender: AUROBINDO
  Company Number: US-AUROBINDO-AUR-APL-2025-016356

PATIENT
  Age: 36 Year
  Sex: Female

DRUGS (3)
  1. MILRINONE LACTATE [Suspect]
     Active Substance: MILRINONE LACTATE
     Indication: Cerebral vasoconstriction
     Route: 042
  2. NIMODIPINE [Suspect]
     Active Substance: NIMODIPINE
     Indication: Cerebral vasoconstriction
     Route: 048
  3. ROPIVACAINE [Concomitant]
     Active Substance: ROPIVACAINE
     Indication: Product used for unknown indication
     Route: 065

REACTIONS (1)
  - Drug ineffective [Unknown]
